FAERS Safety Report 8191251-1 (Version None)
Quarter: 2012Q1

REPORT INFORMATION
  Report Type: 
  Country: None (occurrence: None)
  Receive Date: 20120221
  Receipt Date: 20111215
  Transmission Date: 20120608
  Serious: No
  Sender: FDA-Public Use
  Company Number: 047740

PATIENT
  Sex: Female

DRUGS (1)
  1. LACOSAMIDE [Suspect]
     Indication: EPILEPSY
     Dosage: (100 MG QD)
     Dates: start: 20110801

REACTIONS (3)
  - FATIGUE [None]
  - HYPOAESTHESIA ORAL [None]
  - DIZZINESS [None]
